FAERS Safety Report 18012954 (Version 2)
Quarter: 2022Q4

REPORT INFORMATION
  Report Type: Report from Study
  Country: FR (occurrence: FR)
  Receive Date: 20200713
  Receipt Date: 20221208
  Transmission Date: 20230113
  Serious: Yes (Death)
  Sender: FDA-Public Use
  Company Number: FR-BAXTER-2020BAX014252

PATIENT
  Age: 54 Year
  Sex: Male

DRUGS (2)
  1. DOXORUBICIN HYDROCHLORIDE [Suspect]
     Active Substance: DOXORUBICIN HYDROCHLORIDE
     Indication: Plasma cell myeloma
     Dosage: 1 DOSE(S)/WEEK OTHER 400 MG/DOSE 7 DOSE(S)/WEEK 3 WEEK(S)/CYCLE, TREATMENT LINE NUMBER 7, TREATMENT
     Route: 065
     Dates: end: 20180104
  2. VENETOCLAX [Suspect]
     Active Substance: VENETOCLAX
     Indication: Plasma cell myeloma
     Dosage: 400 MG, 7 INTAKE/WEEK, 3 WEEKS/CYCLE
     Route: 065
     Dates: end: 20180104

REACTIONS (1)
  - Disease progression [Fatal]
